FAERS Safety Report 20159218 (Version 1)
Quarter: 2021Q4

REPORT INFORMATION
  Report Type: Report from Study
  Country: DE (occurrence: DE)
  Receive Date: 20211208
  Receipt Date: 20211208
  Transmission Date: 20220303
  Serious: Yes (Hospitalization)
  Sender: FDA-Public Use
  Company Number: DE-TAKEDA-DE201804521

PATIENT
  Age: 60 Year
  Sex: Female
  Weight: 80 kg

DRUGS (36)
  1. TEDUGLUTIDE [Suspect]
     Active Substance: TEDUGLUTIDE
     Indication: Short-bowel syndrome
     Dosage: UNK
     Route: 065
     Dates: start: 20161128, end: 20170508
  2. TEDUGLUTIDE [Suspect]
     Active Substance: TEDUGLUTIDE
     Indication: Short-bowel syndrome
     Dosage: UNK
     Route: 065
     Dates: start: 20161128, end: 20170508
  3. TEDUGLUTIDE [Suspect]
     Active Substance: TEDUGLUTIDE
     Indication: Short-bowel syndrome
     Dosage: UNK
     Route: 065
     Dates: start: 20161128, end: 20170508
  4. TEDUGLUTIDE [Suspect]
     Active Substance: TEDUGLUTIDE
     Indication: Short-bowel syndrome
     Dosage: UNK
     Route: 065
     Dates: start: 20161128, end: 20170508
  5. TEDUGLUTIDE [Suspect]
     Active Substance: TEDUGLUTIDE
     Dosage: 5 MILLIGRAM, 1X/DAY:QD
     Route: 065
     Dates: start: 20161128, end: 20170315
  6. TEDUGLUTIDE [Suspect]
     Active Substance: TEDUGLUTIDE
     Dosage: 5 MILLIGRAM, 1X/DAY:QD
     Route: 065
     Dates: start: 20161128, end: 20170315
  7. TEDUGLUTIDE [Suspect]
     Active Substance: TEDUGLUTIDE
     Dosage: 5 MILLIGRAM, 1X/DAY:QD
     Route: 065
     Dates: start: 20161128, end: 20170315
  8. TEDUGLUTIDE [Suspect]
     Active Substance: TEDUGLUTIDE
     Dosage: 5 MILLIGRAM, 1X/DAY:QD
     Route: 065
     Dates: start: 20161128, end: 20170315
  9. TEDUGLUTIDE [Suspect]
     Active Substance: TEDUGLUTIDE
     Dosage: 2.5 MILLIGRAM, 1X/DAY:QD
     Route: 065
     Dates: start: 20170316, end: 20170413
  10. TEDUGLUTIDE [Suspect]
     Active Substance: TEDUGLUTIDE
     Dosage: 2.5 MILLIGRAM, 1X/DAY:QD
     Route: 065
     Dates: start: 20170316, end: 20170413
  11. TEDUGLUTIDE [Suspect]
     Active Substance: TEDUGLUTIDE
     Dosage: 2.5 MILLIGRAM, 1X/DAY:QD
     Route: 065
     Dates: start: 20170316, end: 20170413
  12. TEDUGLUTIDE [Suspect]
     Active Substance: TEDUGLUTIDE
     Dosage: 2.5 MILLIGRAM, 1X/DAY:QD
     Route: 065
     Dates: start: 20170316, end: 20170413
  13. TEDUGLUTIDE [Suspect]
     Active Substance: TEDUGLUTIDE
     Dosage: 4 MILLIGRAM, 1X/DAY:QD
     Route: 065
     Dates: start: 20170414, end: 20170421
  14. TEDUGLUTIDE [Suspect]
     Active Substance: TEDUGLUTIDE
     Dosage: 4 MILLIGRAM, 1X/DAY:QD
     Route: 065
     Dates: start: 20170414, end: 20170421
  15. TEDUGLUTIDE [Suspect]
     Active Substance: TEDUGLUTIDE
     Dosage: 4 MILLIGRAM, 1X/DAY:QD
     Route: 065
     Dates: start: 20170414, end: 20170421
  16. TEDUGLUTIDE [Suspect]
     Active Substance: TEDUGLUTIDE
     Dosage: 4 MILLIGRAM, 1X/DAY:QD
     Route: 065
     Dates: start: 20170414, end: 20170421
  17. TEDUGLUTIDE [Suspect]
     Active Substance: TEDUGLUTIDE
     Dosage: 2.5 MILLIGRAM, 1X/DAY:QD
     Route: 065
     Dates: start: 20170422, end: 20170424
  18. TEDUGLUTIDE [Suspect]
     Active Substance: TEDUGLUTIDE
     Dosage: 2.5 MILLIGRAM, 1X/DAY:QD
     Route: 065
     Dates: start: 20170422, end: 20170424
  19. TEDUGLUTIDE [Suspect]
     Active Substance: TEDUGLUTIDE
     Dosage: 2.5 MILLIGRAM, 1X/DAY:QD
     Route: 065
     Dates: start: 20170422, end: 20170424
  20. TEDUGLUTIDE [Suspect]
     Active Substance: TEDUGLUTIDE
     Dosage: 2.5 MILLIGRAM, 1X/DAY:QD
     Route: 065
     Dates: start: 20170422, end: 20170424
  21. TEDUGLUTIDE [Suspect]
     Active Substance: TEDUGLUTIDE
     Dosage: 3.1 MILLIGRAM, 1X/DAY:QD
     Route: 065
     Dates: start: 20170425, end: 20170427
  22. TEDUGLUTIDE [Suspect]
     Active Substance: TEDUGLUTIDE
     Dosage: 3.1 MILLIGRAM, 1X/DAY:QD
     Route: 065
     Dates: start: 20170425, end: 20170427
  23. TEDUGLUTIDE [Suspect]
     Active Substance: TEDUGLUTIDE
     Dosage: 3.1 MILLIGRAM, 1X/DAY:QD
     Route: 065
     Dates: start: 20170425, end: 20170427
  24. TEDUGLUTIDE [Suspect]
     Active Substance: TEDUGLUTIDE
     Dosage: 3.1 MILLIGRAM, 1X/DAY:QD
     Route: 065
     Dates: start: 20170425, end: 20170427
  25. TEDUGLUTIDE [Suspect]
     Active Substance: TEDUGLUTIDE
     Dosage: 2.5 MILLIGRAM, 1X/DAY:QD
     Route: 065
     Dates: start: 20170428, end: 20170508
  26. TEDUGLUTIDE [Suspect]
     Active Substance: TEDUGLUTIDE
     Dosage: 2.5 MILLIGRAM, 1X/DAY:QD
     Route: 065
     Dates: start: 20170428, end: 20170508
  27. TEDUGLUTIDE [Suspect]
     Active Substance: TEDUGLUTIDE
     Dosage: 2.5 MILLIGRAM, 1X/DAY:QD
     Route: 065
     Dates: start: 20170428, end: 20170508
  28. TEDUGLUTIDE [Suspect]
     Active Substance: TEDUGLUTIDE
     Dosage: 2.5 MILLIGRAM, 1X/DAY:QD
     Route: 065
     Dates: start: 20170428, end: 20170508
  29. LOPERAMIDE [Concomitant]
     Active Substance: LOPERAMIDE
     Indication: Short-bowel syndrome
  30. OMEPRAZOL                          /00661201/ [Concomitant]
     Indication: Short-bowel syndrome
  31. PRAMIPEXOL                         /01356401/ [Concomitant]
     Indication: Restless legs syndrome
  32. IMUREK                             /00001501/ [Concomitant]
     Indication: Crohn^s disease
  33. USTEKINUMAB [Concomitant]
     Active Substance: USTEKINUMAB
     Indication: Crohn^s disease
     Dosage: 1 DOSAGE FORM, MONTHLY
     Route: 058
     Dates: start: 20200303
  34. AZATHIOPRINE [Concomitant]
     Active Substance: AZATHIOPRINE
     Indication: Crohn^s disease
     Dosage: 50 MILLIGRAM, QD
     Route: 048
     Dates: start: 20190109, end: 20190521
  35. AZATHIOPRINE [Concomitant]
     Active Substance: AZATHIOPRINE
     Dosage: 75 MILLIGRAM, QD
     Route: 048
     Dates: start: 20180804, end: 20190108
  36. AZATHIOPRINE [Concomitant]
     Active Substance: AZATHIOPRINE
     Dosage: 150 MILLIGRAM, QD
     Route: 048
     Dates: start: 201205, end: 20180803

REACTIONS (1)
  - Depression [Recovered/Resolved with Sequelae]

NARRATIVE: CASE EVENT DATE: 20180102
